FAERS Safety Report 25462466 (Version 1)
Quarter: 2025Q2

REPORT INFORMATION
  Report Type: Spontaneous
  Country: US (occurrence: None)
  Receive Date: 20250619
  Receipt Date: 20250619
  Transmission Date: 20250716
  Serious: Yes (Other)
  Sender: FDA-CTU
  Company Number: None

PATIENT
  Age: 64 Year
  Sex: Female
  Weight: 91.35 kg

DRUGS (20)
  1. MOUNJARO [Suspect]
     Active Substance: TIRZEPATIDE
     Indication: Diabetes mellitus
     Route: 050
     Dates: start: 20250604
  2. MOUNJARO [Suspect]
     Active Substance: TIRZEPATIDE
     Indication: Weight control
  3. LISINOPRIL [Concomitant]
     Active Substance: LISINOPRIL
  4. AMLODIPINE [Concomitant]
     Active Substance: AMLODIPINE BESYLATE
  5. METOPROLOL [Concomitant]
     Active Substance: METOPROLOL
  6. ATORVASTATIN [Concomitant]
     Active Substance: ATORVASTATIN
  7. METFORMIN [Concomitant]
     Active Substance: METFORMIN HYDROCHLORIDE
  8. VALIUM [Concomitant]
     Active Substance: DIAZEPAM
  9. Methylpenidate [Concomitant]
  10. VALACYCLOVIR [Concomitant]
     Active Substance: VALACYCLOVIR HYDROCHLORIDE
  11. GABAPENTIN [Concomitant]
     Active Substance: GABAPENTIN
  12. TRAMADOL [Concomitant]
     Active Substance: TRAMADOL
  13. Centrum Silver Women 50+ daily [Concomitant]
  14. FISH OIL [Concomitant]
     Active Substance: FISH OIL
  15. ASPIRIN [Concomitant]
     Active Substance: ASPIRIN
  16. VITAMIN D3 [Concomitant]
     Active Substance: CHOLECALCIFEROL
  17. IRON [Concomitant]
     Active Substance: IRON
  18. TYLENOL [Concomitant]
     Active Substance: ACETAMINOPHEN
  19. IBUPROFEN [Concomitant]
     Active Substance: IBUPROFEN
  20. CALAMINE LOTION [Concomitant]
     Active Substance: CALAMINE LOTION

REACTIONS (2)
  - Blood blister [None]
  - Rash [None]

NARRATIVE: CASE EVENT DATE: 20250609
